FAERS Safety Report 6419331-9 (Version None)
Quarter: 2009Q4

REPORT INFORMATION
  Report Type: 
  Country: None (occurrence: None)
  Receive Date: 20091029
  Receipt Date: 20091026
  Transmission Date: 20100525
  Serious: Yes (Other)
  Sender: FDA-Public Use
  Company Number: CA-ELI_LILLY_AND_COMPANY-CA200910000885

PATIENT
  Sex: Male

DRUGS (2)
  1. HUMALOG [Suspect]
  2. HUMULIN R [Suspect]

REACTIONS (2)
  - OSTEOARTHRITIS [None]
  - WRONG TECHNIQUE IN DRUG USAGE PROCESS [None]
